FAERS Safety Report 5766869-3 (Version None)
Quarter: 2008Q2

REPORT INFORMATION
  Report Type: 
  Country: None (occurrence: None)
  Receive Date: 20080612
  Receipt Date: 20080602
  Transmission Date: 20081010
  Serious: Yes (Disabling)
  Sender: FDA-Public Use
  Company Number: GB-AMGEN-UK272804

PATIENT
  Age: 46 Year
  Sex: Female
  Weight: 75.8 kg

DRUGS (4)
  1. NEUPOGEN [Suspect]
     Indication: CHEMOTHERAPY
     Route: 058
     Dates: start: 20080316, end: 20080321
  2. TAXOTERE [Concomitant]
     Indication: BREAST CANCER
     Route: 042
     Dates: start: 20080311
  3. DOXORUBICIN HYDROCHLORIDE [Concomitant]
     Indication: BREAST CANCER
     Route: 042
     Dates: start: 20080311
  4. CYCLOPHOSPHAMIDE [Concomitant]
     Indication: BREAST CANCER
     Route: 042
     Dates: start: 20080311

REACTIONS (1)
  - NON-CARDIAC CHEST PAIN [None]
